FAERS Safety Report 8140647-2 (Version None)
Quarter: 2012Q1

REPORT INFORMATION
  Report Type: 
  Country: None (occurrence: None)
  Receive Date: 20120214
  Receipt Date: 20120214
  Transmission Date: 20120608
  Serious: No
  Sender: FDA-Public Use
  Company Number: None

PATIENT
  Sex: Male
  Weight: 66.2252 kg

DRUGS (7)
  1. THEOPHYLLINE [Concomitant]
  2. SPIRIVA [Concomitant]
  3. VT D [Concomitant]
  4. PRADAXA [Concomitant]
  5. ALLEGRA [Concomitant]
  6. DALIRESP [Suspect]
     Indication: CHRONIC OBSTRUCTIVE PULMONARY DISEASE
     Dosage: 500 MG DAILY PO
     Route: 048
     Dates: start: 20110914, end: 20111013
  7. PROTONIX [Concomitant]

REACTIONS (1)
  - CHEST PAIN [None]
